FAERS Safety Report 20352447 (Version 2)
Quarter: 2022Q2

REPORT INFORMATION
  Report Type: Spontaneous
  Country: US (occurrence: US)
  Receive Date: 20220119
  Receipt Date: 20220422
  Transmission Date: 20220721
  Serious: No
  Sender: FDA-Public Use
  Company Number: US-PFIZER INC-2021417244

PATIENT
  Age: 83 Year
  Sex: Female

DRUGS (1)
  1. IBRANCE [Suspect]
     Active Substance: PALBOCICLIB
     Indication: Malignant neoplasm progression
     Dosage: 125 MG

REACTIONS (5)
  - Off label use [Unknown]
  - Product use issue [Unknown]
  - Memory impairment [Unknown]
  - Eye disorder [Unknown]
  - Tooth loss [Unknown]
